FAERS Safety Report 12671168 (Version 2)
Quarter: 2016Q3

REPORT INFORMATION
  Report Type: Spontaneous
  Country: US (occurrence: US)
  Receive Date: 20160822
  Receipt Date: 20160826
  Transmission Date: 20161109
  Serious: No
  Sender: FDA-Public Use
  Company Number: US-HORIZON-ACT-0193-2016

PATIENT
  Age: 2 Year
  Sex: Male

DRUGS (1)
  1. ACTIMMUNE [Suspect]
     Active Substance: INTERFERON GAMMA-1B
     Indication: CHRONIC GRANULOMATOUS DISEASE
     Dosage: 11 ?G TIW
     Route: 058
     Dates: start: 20140911

REACTIONS (2)
  - Lack of injection site rotation [Unknown]
  - Injection site erythema [Unknown]
